FAERS Safety Report 8988538 (Version 1)
Quarter: 2012Q4

REPORT INFORMATION
  Report Type: Spontaneous
  Country: GB (occurrence: None)
  Receive Date: 20121218
  Receipt Date: 20121218
  Transmission Date: 20130627
  Serious: Yes (Other)
  Sender: FDA-Public Use
  Company Number: AUR-APL-2012-05279

PATIENT
  Age: 61 Year
  Sex: Female

DRUGS (3)
  1. NAPROXEN (NAPROXEN) [Suspect]
     Indication: CRAMP
     Route: 048
     Dates: start: 20121106, end: 20121115
  2. ZANTAC [Suspect]
     Indication: PROPHYLAXIS
     Route: 048
     Dates: start: 20121106, end: 20121115
  3. LEVETIRACETAM [Concomitant]

REACTIONS (2)
  - Epilepsy [None]
  - Grand mal convulsion [None]
